FAERS Safety Report 12495420 (Version 1)
Quarter: 2016Q2

REPORT INFORMATION
  Report Type: Spontaneous
  Country: US (occurrence: US)
  Receive Date: 20160624
  Receipt Date: 20160624
  Transmission Date: 20160815
  Serious: Yes (Hospitalization, Other)
  Sender: FDA-Public Use
  Company Number: US-ACTAVIS-2016-13264

PATIENT
  Age: 42 Year
  Sex: Male

DRUGS (1)
  1. QUETIAPINE (AGPTC) [Suspect]
     Active Substance: QUETIAPINE
     Indication: SCHIZOAFFECTIVE DISORDER
     Dosage: 300 MG, DAILY
     Route: 065
     Dates: start: 201302

REACTIONS (2)
  - Pancreatitis relapsing [Recovered/Resolved]
  - Hypertriglyceridaemia [Recovered/Resolved]
